FAERS Safety Report 8443327 (Version 2)
Quarter: 2013Q1

REPORT INFORMATION
  Report Type: Report from Study
  Country: US (occurrence: US)
  Receive Date: 20120306
  Receipt Date: 20130129
  Transmission Date: 20140127
  Serious: Yes (Hospitalization)
  Sender: FDA-Public Use
  Company Number: US-ROCHE-731552

PATIENT
  Age: 58 Year
  Sex: Female
  Weight: 79.4 kg

DRUGS (9)
  1. VEMURAFENIB [Suspect]
     Indication: METASTATIC MALIGNANT MELANOMA
     Dosage: 4 TABLETS IN MORNING AND 4 TABLETS IN EVENING (TOTAL DAILY DOSE OF 1920 MG [960 MG B.I.D.]
     Route: 048
     Dates: start: 20100909, end: 20101001
  2. VEMURAFENIB [Suspect]
     Dosage: 3 TABLETS BID.
     Route: 048
  3. ATENOLOL/CHLORTHALIDONE [Concomitant]
     Dosage: TOTAL DAILY DOSE REPORTED : 50 / 25
     Route: 065
  4. CENTRUM [Concomitant]
  5. LISINOPRIL [Concomitant]
  6. LORTAB [Concomitant]
     Dosage: TOTAL DAILY DOSE: 5/ 500
     Route: 065
  7. PHENERGAN [Concomitant]
     Route: 065
  8. ZOFRAN [Concomitant]
     Route: 065
  9. CALTRATE [Concomitant]
     Dosage: DRUG REPORTED AS: CALTRATE 600 PLUS.
     Route: 065

REACTIONS (1)
  - Renal failure acute [Recovered/Resolved]
